FAERS Safety Report 4981810-9 (Version None)
Quarter: 2006Q2

REPORT INFORMATION
  Report Type: 
  Country: None (occurrence: None)
  Receive Date: 20060425
  Receipt Date: 20060412
  Transmission Date: 20061013
  Serious: Yes (Life-Threatening)
  Sender: FDA-Public Use
  Company Number: JP-JPN-A200601211

PATIENT
  Age: 0 Day
  Sex: Male

DRUGS (5)
  1. PAXIL [Suspect]
     Indication: DEPRESSION
     Dosage: 30MG PER DAY
     Dates: start: 20041202
  2. HIRNAMIN [Suspect]
     Dosage: 25MG PER DAY
     Route: 065
  3. SILECE [Suspect]
     Dosage: 4MG PER DAY
     Route: 065
  4. DOGMATYL [Suspect]
     Dosage: 50MG THREE TIMES PER DAY
     Route: 065
  5. LIMAS [Suspect]
     Dosage: 200MG THREE TIMES PER DAY

REACTIONS (2)
  - DRUG EXPOSURE DURING PREGNANCY [None]
  - NEONATAL ASPHYXIA [None]
